FAERS Safety Report 5265764-6 (Version None)
Quarter: 2007Q1

REPORT INFORMATION
  Report Type: 
  Country: None (occurrence: None)
  Receive Date: 20061213
  Receipt Date: 20050304
  Transmission Date: 20070707
  Serious: Yes (Other)
  Sender: FDA-Public Use
  Company Number: 2005UW00544

PATIENT
  Age: 75 Year
  Sex: Female
  Weight: 68.038 kg

DRUGS (4)
  1. IRESSA [Suspect]
     Indication: LUNG NEOPLASM MALIGNANT
     Dates: start: 20041201
  2. COUMADIN [Concomitant]
  3. ZOLOFT [Concomitant]
  4. ATIVAN [Concomitant]

REACTIONS (8)
  - BLEPHARITIS [None]
  - DRY SKIN [None]
  - EYE IRRITATION [None]
  - OCULAR HYPERAEMIA [None]
  - PRURITUS [None]
  - RASH [None]
  - SUNBURN [None]
  - SWELLING FACE [None]
